FAERS Safety Report 9357894 (Version 2)
Quarter: 2013Q3

REPORT INFORMATION
  Report Type: Spontaneous
  Country: JP (occurrence: JP)
  Receive Date: 20130620
  Receipt Date: 20130920
  Transmission Date: 20140515
  Serious: Yes (Hospitalization)
  Sender: FDA-Public Use
  Company Number: JP-PFIZER INC-2013182232

PATIENT
  Age: 80 Year
  Sex: Female

DRUGS (3)
  1. AMLODIN [Suspect]
     Dosage: UNK
     Route: 048
  2. SIMVASTATIN [Concomitant]
     Dosage: UNK
  3. ZOLPIDEM TARTRATE [Concomitant]
     Dosage: UNK

REACTIONS (1)
  - Drug eruption [Recovered/Resolved]
